FAERS Safety Report 4777554-9 (Version None)
Quarter: 2005Q3

REPORT INFORMATION
  Report Type: 
  Country: None (occurrence: None)
  Receive Date: 20050915
  Receipt Date: 20050831
  Transmission Date: 20060218
  Serious: Yes (Hospitalization)
  Sender: FDA-Public Use
  Company Number: 2005BI004721

PATIENT
  Age: 64 Year
  Sex: Female

DRUGS (2)
  1. AVONEX [Suspect]
     Indication: MULTIPLE SCLEROSIS
     Dosage: 30 UG QW IM
     Route: 030
     Dates: start: 20020308, end: 20030726
  2. AVONEX [Suspect]
     Indication: MULTIPLE SCLEROSIS
     Dosage: 30 UG QW IM
     Route: 030
     Dates: start: 20030803

REACTIONS (11)
  - BALANCE DISORDER [None]
  - CERVICAL SPINAL STENOSIS [None]
  - DEPRESSION [None]
  - LOCAL SWELLING [None]
  - NECK PAIN [None]
  - PAIN IN EXTREMITY [None]
  - POST PROCEDURAL COMPLICATION [None]
  - POST PROCEDURAL OEDEMA [None]
  - PROCEDURAL PAIN [None]
  - SHOULDER PAIN [None]
  - VISUAL DISTURBANCE [None]
